FAERS Safety Report 10422657 (Version 2)
Quarter: 2014Q3

REPORT INFORMATION
  Report Type: Spontaneous
  Country: US (occurrence: US)
  Receive Date: 20140902
  Receipt Date: 20140923
  Transmission Date: 20150326
  Serious: Yes (Other)
  Sender: FDA-Public Use
  Company Number: US-AMGEN-USASP2014065157

PATIENT
  Sex: Male

DRUGS (1)
  1. XGEVA [Suspect]
     Active Substance: DENOSUMAB
     Indication: PROPHYLAXIS
     Dosage: UNK
     Route: 065

REACTIONS (9)
  - Headache [Unknown]
  - Oral discomfort [Recovering/Resolving]
  - Hypoaesthesia [Unknown]
  - Pain [Unknown]
  - Dysphagia [Unknown]
  - Mastication disorder [Unknown]
  - Bone fragmentation [Unknown]
  - Ear pain [Unknown]
  - Oral infection [Recovering/Resolving]

NARRATIVE: CASE EVENT DATE: 201408
